FAERS Safety Report 6239083-5 (Version None)
Quarter: 2009Q2

REPORT INFORMATION
  Report Type: 
  Country: None (occurrence: None)
  Receive Date: 20090617
  Receipt Date: 20090617
  Transmission Date: 20091009
  Serious: Yes (Other)
  Sender: FDA-Public Use
  Company Number: None

PATIENT
  Sex: Female
  Weight: 97.5234 kg

DRUGS (2)
  1. WAL-PHED SINUS + ALLERGY MAXIMUM STRENGTH WALGREEN'S [Suspect]
     Indication: MULTIPLE ALLERGIES
     Dosage: 1 TABLET 4 TO 6 HOURS PO
     Route: 048
     Dates: start: 20090509, end: 20090515
  2. WAL-PHED SINUS + ALLERGY MAXIMUM STRENGTH WALGREEN'S [Suspect]
     Indication: NASOPHARYNGITIS
     Dosage: 1 TABLET 4 TO 6 HOURS PO
     Route: 048
     Dates: start: 20090509, end: 20090515

REACTIONS (2)
  - AGEUSIA [None]
  - ANOSMIA [None]
